FAERS Safety Report 10143334 (Version 1)
Quarter: 2014Q2

REPORT INFORMATION
  Report Type: Report from Study
  Country: DE (occurrence: IE)
  Receive Date: 20140430
  Receipt Date: 20140430
  Transmission Date: 20141212
  Serious: Yes (Hospitalization)
  Sender: FDA-Public Use
  Company Number: DE-ACTELION-A-US2014-93741

PATIENT
  Age: 81 Year
  Sex: Female

DRUGS (1)
  1. VENTAVIS [Suspect]
     Indication: PULMONARY HYPERTENSION
     Dosage: 10 MCG, 6 TIMES A DAY
     Route: 055
     Dates: start: 20131128

REACTIONS (2)
  - Fall [Unknown]
  - Hip fracture [Unknown]
